FAERS Safety Report 5151443-2 (Version None)
Quarter: 2006Q4

REPORT INFORMATION
  Report Type: 
  Country: None (occurrence: None)
  Receive Date: 20061115
  Receipt Date: 20060908
  Transmission Date: 20070319
  Serious: Yes (Death, Hospitalization, Disabling, Other)
  Sender: FDA-Public Use
  Company Number: PHEH2006US11524

PATIENT
  Age: 82 Year
  Sex: Male
  Weight: 58.049 kg

DRUGS (7)
  1. EXJADE [Suspect]
     Indication: HAEMOSIDEROSIS
     Dosage: 1000 MG, QD
     Route: 048
     Dates: start: 20060605, end: 20060609
  2. AMIODARONE HCL [Concomitant]
     Dosage: 250 MG, QD
  3. SYNTHROID [Concomitant]
     Dosage: 88 MG, QD
  4. ZOLOFT [Concomitant]
     Dosage: 50 MG, QD
  5. ARANESP [Concomitant]
  6. SENOKOT /UNK/ [Concomitant]
  7. POTASSIUM CHLORIDE [Concomitant]
     Dosage: 20 MG, QD

REACTIONS (16)
  - ACUTE LEUKAEMIA [None]
  - ACUTE MYOCARDIAL INFARCTION [None]
  - ANAEMIA OF CHRONIC DISEASE [None]
  - ASTHENIA [None]
  - BLOOD CREATININE INCREASED [None]
  - CARDIAC ENZYMES INCREASED [None]
  - CARDIAC FAILURE CONGESTIVE [None]
  - CONDITION AGGRAVATED [None]
  - DYSPNOEA [None]
  - ELECTROCARDIOGRAM ABNORMAL [None]
  - HYPOACUSIS [None]
  - LABORATORY TEST ABNORMAL [None]
  - MYOCARDIAL ISCHAEMIA [None]
  - PACKED RED BLOOD CELL TRANSFUSION [None]
  - RENAL FAILURE CHRONIC [None]
  - VENTRICULAR HYPERTROPHY [None]
